FAERS Safety Report 7543500-8 (Version None)
Quarter: 2011Q2

REPORT INFORMATION
  Report Type: 
  Country: None (occurrence: None)
  Receive Date: 20110613
  Receipt Date: 20110608
  Transmission Date: 20111010
  Serious: Yes (Other)
  Sender: FDA-Public Use
  Company Number: GB-ALLERGAN-1101257US

PATIENT
  Age: 16 Year
  Sex: Female

DRUGS (3)
  1. BIMATOPROST [Suspect]
     Indication: OCULAR HYPERTENSION
     Route: 047
  2. BRIMONIDINE TARTRATE 2 MG/ML (0.2%) EYE DROPS, SOL [Concomitant]
     Indication: OCULAR HYPERTENSION
  3. COSOPT [Concomitant]
     Indication: OCULAR HYPERTENSION

REACTIONS (1)
  - RETINAL DETACHMENT [None]
